FAERS Safety Report 17333369 (Version 1)
Quarter: 2020Q1

REPORT INFORMATION
  Report Type: Spontaneous
  Country: SE (occurrence: SE)
  Receive Date: 20200128
  Receipt Date: 20200128
  Transmission Date: 20200409
  Serious: Yes (Hospitalization)
  Sender: FDA-Public Use
  Company Number: SE-MYLANLABS-2020M1010423

PATIENT
  Age: 32 Year
  Sex: Female

DRUGS (2)
  1. LERGIGAN (PROMETHAZINE HYDROCHLORIDE) [Suspect]
     Active Substance: PROMETHAZINE HYDROCHLORIDE
     Indication: PRODUCT USED FOR UNKNOWN INDICATION
     Dosage: 70-100X25 MG
     Route: 048
     Dates: start: 20190723, end: 20190723
  2. BISOPROLOL [Suspect]
     Active Substance: BISOPROLOL
     Indication: PRODUCT USED FOR UNKNOWN INDICATION
     Dosage: 30-50X5 MG
     Route: 048
     Dates: start: 20190723, end: 20190723

REACTIONS (6)
  - Confusional state [Unknown]
  - Akathisia [Unknown]
  - Loss of consciousness [Unknown]
  - Intentional overdose [Unknown]
  - Intentional self-injury [Unknown]
  - Hallucination [Unknown]

NARRATIVE: CASE EVENT DATE: 20190723
